FAERS Safety Report 15560120 (Version 2)
Quarter: 2018Q4

REPORT INFORMATION
  Report Type: Spontaneous
  Country: CN (occurrence: CN)
  Receive Date: 20181029
  Receipt Date: 20181123
  Transmission Date: 20190205
  Serious: Yes (Other)
  Sender: FDA-Public Use
  Company Number: CN-ROCHE-2205785

PATIENT
  Age: 29 Year
  Sex: Female

DRUGS (1)
  1. TOCILIZUMAB. [Suspect]
     Active Substance: TOCILIZUMAB
     Indication: SAPHO SYNDROME
     Route: 042

REACTIONS (3)
  - SAPHO syndrome [Unknown]
  - Drug ineffective [Unknown]
  - Neutropenia [Recovered/Resolved]
